FAERS Safety Report 10771545 (Version 1)
Quarter: 2015Q1

REPORT INFORMATION
  Report Type: Spontaneous
  Country: DK (occurrence: DK)
  Receive Date: 20150206
  Receipt Date: 20150206
  Transmission Date: 20150721
  Serious: Yes (Hospitalization)
  Sender: FDA-Public Use
  Company Number: DK-WATSON-2015-01234

PATIENT
  Age: 30 Year
  Sex: Female

DRUGS (2)
  1. CITALOPRAM ALTERNOVA [Concomitant]
     Indication: DEPRESSION
     Dosage: UNK
     Route: 065
     Dates: start: 20130101
  2. TETRACYCLINE ACTAVIS (UNKNOWN) [Suspect]
     Active Substance: TETRACYCLINE
     Indication: ACNE
     Dosage: 500 MG, BID
     Route: 048
     Dates: start: 20141125, end: 20150116

REACTIONS (4)
  - Papilloedema [Recovering/Resolving]
  - Ocular discomfort [Recovering/Resolving]
  - Intracranial pressure increased [Recovering/Resolving]
  - Headache [Recovering/Resolving]

NARRATIVE: CASE EVENT DATE: 20141208
